FAERS Safety Report 13195966 (Version 2)
Quarter: 2017Q2

REPORT INFORMATION
  Report Type: Spontaneous
  Country: HR (occurrence: HR)
  Receive Date: 20170208
  Receipt Date: 20170414
  Transmission Date: 20170830
  Serious: Yes (Other)
  Sender: FDA-Public Use
  Company Number: HR-SUN PHARMACEUTICAL INDUSTRIES LTD-2017R1-132802

PATIENT
  Age: 20 Year
  Sex: Female

DRUGS (1)
  1. HYDRALAZINE [Suspect]
     Active Substance: HYDRALAZINE HYDROCHLORIDE
     Indication: BLOOD PRESSURE MANAGEMENT
     Dosage: 5-10 MG/HR
     Route: 042

REACTIONS (4)
  - Premature delivery [Unknown]
  - Aspartate aminotransferase increased [Unknown]
  - Exposure during pregnancy [Unknown]
  - Alanine aminotransferase increased [Unknown]
